FAERS Safety Report 12142610 (Version 1)
Quarter: 2016Q1

REPORT INFORMATION
  Report Type: Report from Study
  Country: US (occurrence: US)
  Receive Date: 20160303
  Receipt Date: 20160303
  Transmission Date: 20160526
  Serious: Yes (Hospitalization, Other)
  Sender: FDA-Public Use
  Company Number: US-ABBVIE-16K-163-1569124-00

PATIENT
  Age: 83 Year
  Sex: Female

DRUGS (4)
  1. HUMIRA [Suspect]
     Active Substance: ADALIMUMAB
     Indication: RHEUMATOID ARTHRITIS
     Dosage: QUITE A FEW YEARS
     Route: 058
     Dates: end: 201602
  2. PREDNISONE. [Concomitant]
     Active Substance: PREDNISONE
     Indication: RHEUMATOID ARTHRITIS
  3. FOLTANX RF [Concomitant]
     Indication: PARAESTHESIA
  4. ENALAPRIL [Concomitant]
     Active Substance: ENALAPRIL
     Indication: HYPERTENSION

REACTIONS (9)
  - Chest X-ray abnormal [Not Recovered/Not Resolved]
  - Dyspepsia [Recovered/Resolved]
  - Ascites [Recovering/Resolving]
  - Dyspepsia [Not Recovered/Not Resolved]
  - Malaise [Recovering/Resolving]
  - Nausea [Not Recovered/Not Resolved]
  - Neoplasm [Not Recovered/Not Resolved]
  - Ovarian cancer [Not Recovered/Not Resolved]
  - Memory impairment [Not Recovered/Not Resolved]

NARRATIVE: CASE EVENT DATE: 201508
